FAERS Safety Report 8934856 (Version 1)
Quarter: 2012Q4

REPORT INFORMATION
  Report Type: Report from Study
  Country: AU (occurrence: AU)
  Receive Date: 20121129
  Receipt Date: 20121129
  Transmission Date: 20130627
  Serious: Yes (Other)
  Sender: FDA-Public Use
  Company Number: US-ASTELLAS-2012US011444

PATIENT

DRUGS (2)
  1. ERLOTINIB TABLET [Suspect]
     Indication: METASTATIC RENAL CELL CARCINOMA
     Dosage: 150 mg, Unknown/D
     Route: 048
  2. BEVACIZUMAB [Suspect]
     Indication: METASTATIC RENAL CELL CARCINOMA
     Dosage: 15 mg/kg, Unknown/D
     Route: 065

REACTIONS (3)
  - Fistula [Unknown]
  - Retroperitoneal abscess [Unknown]
  - Malignant neoplasm progression [Unknown]
